FAERS Safety Report 4428442-9 (Version None)
Quarter: 2004Q3

REPORT INFORMATION
  Report Type: 
  Country: None (occurrence: None)
  Receive Date: 20040813
  Receipt Date: 20040802
  Transmission Date: 20050211
  Serious: Yes (Other)
  Sender: FDA-Public Use
  Company Number: 2004045146

PATIENT
  Age: 68 Year
  Sex: Male

DRUGS (3)
  1. LIPITOR [Suspect]
     Indication: DYSLIPIDAEMIA
     Dosage: 10 MG (10 MG, 1 IN 1 D), ORAL
     Route: 048
     Dates: start: 20021201
  2. TRIFLUSAL [Concomitant]
  3. ATENOLOL [Concomitant]

REACTIONS (5)
  - AORTIC ANEURYSM [None]
  - BLOOD CHOLESTEROL INCREASED [None]
  - BLOOD TRIGLYCERIDES INCREASED [None]
  - HEPATIC STEATOSIS [None]
  - RENAL ARTERY STENOSIS [None]
